FAERS Safety Report 23392352 (Version 2)
Quarter: 2024Q1

REPORT INFORMATION
  Report Type: Spontaneous
  Country: CN (occurrence: None)
  Receive Date: 20240111
  Receipt Date: 20240122
  Transmission Date: 20240410
  Serious: Yes (Other)
  Sender: FDA-Public Use
  Company Number: 2023A294593

PATIENT
  Age: 66 Year
  Sex: Female

DRUGS (4)
  1. LOKELMA [Suspect]
     Active Substance: SODIUM ZIRCONIUM CYCLOSILICATE
     Indication: Blood potassium abnormal
     Route: 048
     Dates: start: 20231223
  2. LOKELMA [Suspect]
     Active Substance: SODIUM ZIRCONIUM CYCLOSILICATE
     Indication: Blood potassium abnormal
     Route: 048
  3. LOKELMA [Suspect]
     Active Substance: SODIUM ZIRCONIUM CYCLOSILICATE
     Indication: Blood potassium abnormal
     Route: 048
  4. LOKELMA [Suspect]
     Active Substance: SODIUM ZIRCONIUM CYCLOSILICATE
     Indication: Blood potassium abnormal
     Route: 048

REACTIONS (7)
  - Blood potassium increased [Unknown]
  - Drug effect less than expected [Recovered/Resolved]
  - Dyschezia [Recovered/Resolved]
  - Faecal disimpaction [Recovered/Resolved]
  - Discomfort [Unknown]
  - Malaise [Unknown]
  - Intentional product misuse [Unknown]
